FAERS Safety Report 8236781-9 (Version None)
Quarter: 2012Q1

REPORT INFORMATION
  Report Type: 
  Country: None (occurrence: None)
  Receive Date: 20120327
  Receipt Date: 20120319
  Transmission Date: 20120608
  Serious: Yes (Other)
  Sender: FDA-Public Use
  Company Number: IT-JNJFOC-20120309079

PATIENT
  Age: 33 Year
  Sex: Male

DRUGS (1)
  1. RISPERDAL [Suspect]
     Indication: PRODUCT USED FOR UNKNOWN INDICATION
     Route: 048
     Dates: start: 20120319, end: 20120319

REACTIONS (2)
  - SELF INJURIOUS BEHAVIOUR [None]
  - TACHYCARDIA [None]
